FAERS Safety Report 11246812 (Version 3)
Quarter: 2015Q3

REPORT INFORMATION
  Report Type: Spontaneous
  Country: US (occurrence: US)
  Receive Date: 20150708
  Receipt Date: 20150818
  Transmission Date: 20151125
  Serious: Yes (Other)
  Sender: FDA-Public Use
  Company Number: US-BIOGENIDEC-2015BI091032

PATIENT
  Sex: Male

DRUGS (1)
  1. AVONEX [Suspect]
     Active Substance: INTERFERON BETA-1A
     Indication: SECONDARY PROGRESSIVE MULTIPLE SCLEROSIS
     Route: 030
     Dates: start: 200001, end: 20150629

REACTIONS (12)
  - Intervertebral disc degeneration [Not Recovered/Not Resolved]
  - Paraesthesia [Unknown]
  - Trigeminal neuralgia [Not Recovered/Not Resolved]
  - Injection site scar [Unknown]
  - Suicidal ideation [Unknown]
  - Off label use [Unknown]
  - Neck pain [Unknown]
  - Thrombocytopenia [Not Recovered/Not Resolved]
  - Chills [Unknown]
  - Hypothyroidism [Unknown]
  - Hypoaesthesia [Unknown]
  - Fatigue [Unknown]

NARRATIVE: CASE EVENT DATE: 2000
